FAERS Safety Report 6016979-0 (Version None)
Quarter: 2008Q4

REPORT INFORMATION
  Report Type: 
  Country: None (occurrence: None)
  Receive Date: 20081222
  Receipt Date: 20081215
  Transmission Date: 20090506
  Serious: Yes (Other)
  Sender: FDA-Public Use
  Company Number: SE-RANBAXY-2008RR-19601

PATIENT
  Age: 86 Year
  Sex: Female

DRUGS (4)
  1. PREDNISOLONE [Suspect]
  2. ASPIRIN [Suspect]
  3. METOPROLOL [Suspect]
  4. MIDAZOLAM [Concomitant]
     Indication: SEDATION

REACTIONS (1)
  - COLITIS COLLAGENOUS [None]
